FAERS Safety Report 5874402-0 (Version None)
Quarter: 2008Q3

REPORT INFORMATION
  Report Type: 
  Country: None (occurrence: None)
  Receive Date: 20080908
  Receipt Date: 20080827
  Transmission Date: 20090109
  Serious: Yes (Hospitalization, Other)
  Sender: FDA-Public Use
  Company Number: US-PFIZER INC-2005137941

PATIENT
  Sex: Female
  Weight: 51.7 kg

DRUGS (18)
  1. SU-011,248 [Suspect]
     Indication: GASTROINTESTINAL STROMAL TUMOUR
     Route: 048
     Dates: start: 20041008
  2. RIFAXIMIN [Concomitant]
     Indication: DIARRHOEA
     Route: 048
     Dates: start: 20050701
  3. FIBERCON [Concomitant]
     Route: 048
     Dates: start: 20050701
  4. NEXIUM [Concomitant]
     Indication: DYSPEPSIA
     Route: 048
     Dates: start: 20050701
  5. ZELNORM [Concomitant]
     Indication: DIARRHOEA
     Route: 048
     Dates: start: 20050701
  6. MILK OF MAGNESIA [Concomitant]
     Route: 048
     Dates: start: 20050701
  7. DURAGESIC-100 [Concomitant]
     Route: 062
  8. ESTRADIOL [Concomitant]
     Route: 062
  9. OXYCODONE HCL [Concomitant]
     Route: 048
  10. MOTRIN [Concomitant]
     Indication: PAIN
     Route: 048
  11. ZOFRAN [Concomitant]
     Route: 048
  12. PROMETHAZINE [Concomitant]
     Route: 048
  13. SENOKOT [Concomitant]
     Route: 048
  14. CLARITIN [Concomitant]
     Indication: HYPERSENSITIVITY
     Route: 048
  15. VALIUM [Concomitant]
     Route: 048
  16. TUMS [Concomitant]
     Route: 048
  17. SYNTHROID [Concomitant]
     Indication: HYPOTHYROIDISM
     Route: 048
  18. MORPHINE [Concomitant]
     Route: 048
     Dates: start: 20050901

REACTIONS (4)
  - BACTERAEMIA [None]
  - BRADYCARDIA [None]
  - HYPOTENSION [None]
  - URINARY TRACT INFECTION [None]
